FAERS Safety Report 6917762-1 (Version None)
Quarter: 2010Q3

REPORT INFORMATION
  Report Type: 
  Country: None (occurrence: None)
  Receive Date: 20100810
  Receipt Date: 20100804
  Transmission Date: 20110219
  Serious: Yes (Hospitalization)
  Sender: FDA-Public Use
  Company Number: US-PFIZER INC-2010094177

PATIENT
  Sex: Female
  Weight: 74.376 kg

DRUGS (26)
  1. BLINDED *IBUPROFEN [Suspect]
     Indication: OSTEOARTHRITIS
     Dosage: HIGH DOSE
     Route: 048
     Dates: start: 20070523, end: 20100604
  2. NAPROXEN [Suspect]
     Indication: OSTEOARTHRITIS
     Dosage: HIGH DOSE
     Route: 048
     Dates: start: 20070523, end: 20100604
  3. BLINDED *NO SUBJECT DRUG [Suspect]
     Indication: OSTEOARTHRITIS
     Dosage: HIGH DOSE
     Route: 048
     Dates: start: 20070523, end: 20100604
  4. BLINDED *PLACEBO [Suspect]
     Indication: OSTEOARTHRITIS
     Dosage: HIGH DOSE
     Route: 048
     Dates: start: 20070523, end: 20100604
  5. BLINDED CELECOXIB [Suspect]
     Indication: OSTEOARTHRITIS
     Dosage: HIGH DOSE
     Route: 048
     Dates: start: 20070523, end: 20100604
  6. BLINDED IBUPROFEN [Suspect]
     Dosage: HIGH DOSE
     Route: 048
     Dates: start: 20070523, end: 20100604
  7. NAPROXEN [Suspect]
     Dosage: HIGH DOSE
     Route: 048
     Dates: start: 20070523, end: 20100604
  8. BLINDED *IBUPROFEN [Suspect]
     Indication: RHEUMATOID ARTHRITIS
  9. NAPROXEN [Suspect]
     Indication: RHEUMATOID ARTHRITIS
  10. BLINDED *NO SUBJECT DRUG [Suspect]
     Indication: RHEUMATOID ARTHRITIS
  11. BLINDED *PLACEBO [Suspect]
     Indication: RHEUMATOID ARTHRITIS
  12. BLINDED CELECOXIB [Suspect]
     Indication: RHEUMATOID ARTHRITIS
  13. BLINDED IBUPROFEN [Suspect]
  14. NAPROXEN [Suspect]
  15. DEPO-MEDROL [Suspect]
     Dosage: 120 MG, UNK
     Route: 030
     Dates: start: 20100527, end: 20100527
  16. NEXIUM [Concomitant]
     Indication: PROPHYLAXIS
     Dosage: 40 MG, 1X/DAY
     Route: 048
     Dates: start: 20070523, end: 20100604
  17. IRON [Concomitant]
     Dosage: UNK
     Route: 048
     Dates: start: 20051101
  18. GABAPENTIN [Concomitant]
     Dosage: UNK
     Route: 048
     Dates: start: 20081117
  19. METHOTREXATE [Concomitant]
     Dosage: UNK
     Route: 048
     Dates: start: 19950612
  20. FOLIC ACID [Concomitant]
     Dosage: UNK
     Route: 048
     Dates: start: 19950612
  21. TRAZODONE [Concomitant]
     Dosage: UNK
     Route: 048
     Dates: start: 20031103
  22. VICODIN [Concomitant]
     Dosage: UNK
     Route: 048
     Dates: start: 20031103
  23. FLEXERIL [Concomitant]
     Dosage: UNK
     Route: 048
     Dates: start: 19981117
  24. PROZAC [Concomitant]
     Dosage: UNK
     Route: 048
     Dates: start: 19981111
  25. FIORICET [Concomitant]
     Dosage: UNK
     Route: 048
     Dates: start: 19900606
  26. DYAZIDE [Concomitant]
     Dosage: UNK
     Route: 048
     Dates: start: 19900606

REACTIONS (6)
  - BLOOD CHLORIDE DECREASED [None]
  - BLOOD SODIUM DECREASED [None]
  - GASTRIC ULCER [None]
  - NAUSEA [None]
  - SMALL INTESTINAL STENOSIS [None]
  - VOMITING [None]
